FAERS Safety Report 5307037-9 (Version None)
Quarter: 2007Q2

REPORT INFORMATION
  Report Type: 
  Country: None (occurrence: None)
  Receive Date: 20070420
  Receipt Date: 20070420
  Transmission Date: 20071010
  Serious: Yes (Death)
  Sender: FDA-Public Use
  Company Number: None

PATIENT
  Sex: Male

DRUGS (2)
  1. MIRTAZAPINE [Suspect]
     Dates: start: 20060929, end: 20070313
  2. TRAZODONE  75MG PO HS [Suspect]
     Dates: start: 20060104, end: 20070313

REACTIONS (1)
  - COMPLETED SUICIDE [None]
